FAERS Safety Report 25394601 (Version 3)
Quarter: 2025Q2

REPORT INFORMATION
  Report Type: Report from Study
  Country: US (occurrence: US)
  Receive Date: 20250604
  Receipt Date: 20250617
  Transmission Date: 20250717
  Serious: Yes (Hospitalization, Other)
  Sender: ROCHE
  Company Number: US-ROCHE-10000296715

PATIENT
  Age: 84 Year
  Sex: Female
  Weight: 56.69 kg

DRUGS (14)
  1. ITOVEBI [Suspect]
     Active Substance: INAVOLISIB
     Indication: Breast cancer
     Route: 048
     Dates: start: 202501
  2. ITOVEBI [Suspect]
     Active Substance: INAVOLISIB
     Indication: Breast cancer metastatic
  3. METOPROLOL SUCCINATE [Concomitant]
     Active Substance: METOPROLOL SUCCINATE
     Indication: Palpitations
     Dosage: TAKEN ONE HALF TAB BY MOUTH DAILY
     Route: 048
  4. POTASSIUM CHLORIDE [Concomitant]
     Active Substance: POTASSIUM CHLORIDE
     Indication: Hypokalaemia
     Dosage: TAKE FOUR TAB BY MOUTH DAILY FOR 3 DAYS AS NEDDED FOR LOW POTASSIUM LEVEL
     Route: 048
  5. TIMOLOL MALEATE [Concomitant]
     Active Substance: TIMOLOL MALEATE
     Indication: Open angle glaucoma
     Dosage: APPLY ONE DROP TO BOTH EYES DAILY
  6. LOPERAMIDE [Concomitant]
     Active Substance: LOPERAMIDE
     Route: 048
  7. ONDANSETRON [Concomitant]
     Active Substance: ONDANSETRON
     Dosage: TAKE 1 TAB BID ON DAYS 2, 3 AND 4 AND AGAIN ON DAY 9, 10 AND 11 AFTER RECEIVING SACITUZUMAB GOVITECA
  8. ATROPINE\DIPHENOXYLATE [Concomitant]
     Active Substance: ATROPINE\DIPHENOXYLATE
     Indication: Breast cancer
     Dosage: TAKE ONE TAB TO TWO TAB BY MOUTH FOUR TIME A DAY AS NEEDED FOR DIARRHEA MAXIMUM OF 6 TAB PER DAY?2.5
     Route: 048
  9. TRAZODONE [Concomitant]
     Active Substance: TRAZODONE HYDROCHLORIDE
     Indication: Insomnia
     Dosage: TAKE 2 TAB BY MOUTH DAILY AT BEDTIME
     Route: 048
  10. POLYMYXIN B SULFATE\TRIMETHOPRIM [Concomitant]
     Active Substance: POLYMYXIN B SULFATE\TRIMETHOPRIM
     Dosage: 10,000 UNITS/ML 0.1% SOLUTION?APPLY ONE DROP TO BOTH EYES FOUR TIMES A DAY
  11. LIDOCAINE AND PRILOCAINE [Concomitant]
     Active Substance: LIDOCAINE\PRILOCAINE
  12. PROCHLORPERAZINE [Concomitant]
     Active Substance: PROCHLORPERAZINE
     Indication: Nausea
     Route: 048
  13. NETARSUDIL-LATANOPROST [Concomitant]
     Indication: Open angle glaucoma
     Dosage: 0.02-0.005% SOLUTION?APPLY 1 DROP TO EFFECTED EYE DAILY AT BEDTIME
  14. LIDOCAINE [Concomitant]
     Active Substance: LIDOCAINE
     Indication: Sciatica

REACTIONS (8)
  - Cerebrovascular accident [Recovered/Resolved with Sequelae]
  - Blood sodium decreased [Not Recovered/Not Resolved]
  - Taste disorder [Not Recovered/Not Resolved]
  - Weight decreased [Not Recovered/Not Resolved]
  - Bone cancer metastatic [Unknown]
  - Off label use [Unknown]
  - Decreased appetite [Not Recovered/Not Resolved]
  - Asthenia [Not Recovered/Not Resolved]

NARRATIVE: CASE EVENT DATE: 20250501
